FAERS Safety Report 5416709-7 (Version None)
Quarter: 2007Q3

REPORT INFORMATION
  Report Type: 
  Country: None (occurrence: None)
  Receive Date: 20070816
  Receipt Date: 20070813
  Transmission Date: 20080115
  Serious: Yes (Other)
  Sender: FDA-Public Use
  Company Number: A0656582A

PATIENT
  Age: 44 Year
  Sex: Male
  Weight: 100 kg

DRUGS (2)
  1. ADVAIR DISKUS 100/50 [Suspect]
     Indication: ASTHMA
     Dosage: 1PUFF TWICE PER DAY
     Route: 055
     Dates: start: 20060601
  2. ALBUTEROL [Concomitant]

REACTIONS (4)
  - BLINDNESS [None]
  - VISION BLURRED [None]
  - VISUAL ACUITY TESTS ABNORMAL [None]
  - VISUAL DISTURBANCE [None]
